FAERS Safety Report 13043019 (Version 1)
Quarter: 2016Q4

REPORT INFORMATION
  Report Type: Spontaneous
  Country: IT (occurrence: IT)
  Receive Date: 20161219
  Receipt Date: 20161219
  Transmission Date: 20170207
  Serious: Yes (Life-Threatening)
  Sender: FDA-Public Use
  Company Number: IT-PFIZER INC-2016581771

PATIENT
  Age: 37 Year
  Sex: Male

DRUGS (2)
  1. LORMETAZEPAM [Interacting]
     Active Substance: LORMETAZEPAM
  2. DIAZEPAM. [Suspect]
     Active Substance: DIAZEPAM

REACTIONS (4)
  - Somnolence [Unknown]
  - Labelled drug-drug interaction medication error [Unknown]
  - Suicide attempt [Unknown]
  - Wrong technique in product usage process [Unknown]
